FAERS Safety Report 8076903-6 (Version None)
Quarter: 2011Q4

REPORT INFORMATION
  Report Type: 
  Country: None (occurrence: None)
  Receive Date: 20111221
  Receipt Date: 20110808
  Transmission Date: 20120403
  Serious: Yes (Other)
  Sender: FDA-Public Use
  Company Number: PHHY2011US43141

PATIENT
  Age: 65 Year
  Sex: Male
  Weight: 136 kg

DRUGS (10)
  1. EXJADE [Suspect]
     Indication: IRON METABOLISM DISORDER
     Dosage: 2500 MG, QD, ORAL
     Route: 048
  2. EXJADE [Suspect]
     Indication: APLASIA PURE RED CELL
     Dosage: 2500 MG, QD, ORAL
     Route: 048
  3. LAMIVUDINE (LAMIVUDINE) [Concomitant]
  4. LOSARTAN POTASSIUM [Concomitant]
  5. ASPIRIN N (ACETYLSALICYLIC ACID) [Concomitant]
  6. CYTOSPORINE [Concomitant]
  7. ZOCOR [Concomitant]
  8. CYCLOSPORINE [Suspect]
     Indication: APLASIA PURE RED CELL
     Dosage: 100 MG, BID, ORAL, 1000 MG, DAILY, ORAL
     Route: 048
     Dates: start: 20110301
  9. CYCLOSPORINE [Suspect]
     Indication: APLASIA PURE RED CELL
     Dosage: 100 MG, BID, ORAL, 1000 MG, DAILY, ORAL
     Route: 048
     Dates: start: 20110401
  10. METFORMIN HCL [Concomitant]

REACTIONS (3)
  - RENAL IMPAIRMENT [None]
  - DIARRHOEA [None]
  - RENAL FAILURE [None]
